FAERS Safety Report 24384070 (Version 3)
Quarter: 2025Q4

REPORT INFORMATION
  Report Type: Report from Study
  Country: US (occurrence: US)
  Receive Date: 20241001
  Receipt Date: 20251230
  Transmission Date: 20260118
  Serious: Yes (Hospitalization, Other)
  Sender: ABBVIE
  Company Number: US-ABBVIE-5585661

PATIENT
  Sex: Female

DRUGS (8)
  1. SKYRIZI [Suspect]
     Active Substance: RISANKIZUMAB-RZAA
     Indication: Crohn^s disease
     Dosage: FROM STRENGTH: 360 MG
     Route: 058
  2. SKYRIZI [Suspect]
     Active Substance: RISANKIZUMAB-RZAA
     Dosage: WEEK 12 FORM STRENGTH: 360 MG/2.4 ML
     Route: 058
     Dates: start: 20231012
  3. SKYRIZI [Suspect]
     Active Substance: RISANKIZUMAB-RZAA
     Dosage: FROM STRENGTH: 360 MG
     Route: 058
  4. SKYRIZI [Suspect]
     Active Substance: RISANKIZUMAB-RZAA
     Route: 058
  5. SKYRIZI [Suspect]
     Active Substance: RISANKIZUMAB-RZAA
     Route: 058
  6. SKYRIZI [Suspect]
     Active Substance: RISANKIZUMAB-RZAA
     Indication: Crohn^s disease
     Dosage: WEEK 0?FORM STRENGTH: 600 MG
     Route: 042
     Dates: start: 202307, end: 202307
  7. SKYRIZI [Suspect]
     Active Substance: RISANKIZUMAB-RZAA
     Indication: Crohn^s disease
     Dosage: WEEK 4?FORM STRENGTH: 600 MG
     Route: 042
     Dates: start: 202308, end: 202308
  8. SKYRIZI [Suspect]
     Active Substance: RISANKIZUMAB-RZAA
     Indication: Crohn^s disease
     Dosage: WEEK 8?FORM STRENGTH: 600 MG
     Route: 042
     Dates: start: 202309, end: 202309

REACTIONS (17)
  - Dehydration [Recovered/Resolved]
  - Stress [Unknown]
  - Flatulence [Unknown]
  - Skin cancer [Recovering/Resolving]
  - Crohn^s disease [Not Recovered/Not Resolved]
  - Arthralgia [Not Recovered/Not Resolved]
  - Decreased appetite [Unknown]
  - Stenosis [Not Recovered/Not Resolved]
  - Gastrointestinal disorder [Not Recovered/Not Resolved]
  - COVID-19 [Unknown]
  - Food poisoning [Unknown]
  - Constipation [Not Recovered/Not Resolved]
  - Arterial occlusive disease [Unknown]
  - Feeding disorder [Unknown]
  - Dyspnoea [Unknown]
  - Asthenia [Unknown]
  - Aphonia [Unknown]

NARRATIVE: CASE EVENT DATE: 20251201
